FAERS Safety Report 8015562 (Version 3)
Quarter: 2013Q2

REPORT INFORMATION
  Report Type: Report from Study
  Country: US (occurrence: US)
  Receive Date: 20110629
  Receipt Date: 20130416
  Transmission Date: 20140414
  Serious: Yes (Other)
  Sender: FDA-Public Use
  Company Number: US-PFIZER INC-2011141313

PATIENT
  Age: 56 Year
  Sex: Male
  Weight: 100 kg

DRUGS (16)
  1. LYRICA [Suspect]
     Indication: DIABETIC NEUROPATHY
     Dosage: 150 MG, 2X/DAY
     Route: 048
     Dates: start: 2006, end: 201106
  2. OXYCODONE [Concomitant]
     Indication: DIABETIC NEUROPATHY
     Dosage: 15MG DAILY
     Dates: start: 2000
  3. CYCLOBENZAPRINE [Concomitant]
     Indication: MUSCLE SPASMS
     Dosage: 10 MG, UNK
  4. DIOVAN [Concomitant]
     Indication: HYPERTENSION
     Dosage: UNK, DAILY
     Route: 048
  5. CADUET [Concomitant]
     Indication: HYPERTENSION
     Dosage: 5/10MG DAILY
     Route: 048
  6. CADUET [Concomitant]
     Indication: BLOOD TRIGLYCERIDES INCREASED
  7. RITALIN [Concomitant]
     Indication: ATTENTION DEFICIT/HYPERACTIVITY DISORDER
     Dosage: 20 MG, 2X/DAY
     Route: 048
  8. SERTRALINE [Concomitant]
     Indication: DEPRESSION
     Dosage: 50MG DAILY
  9. SYNTHROID [Concomitant]
     Indication: HYPERTHYROIDISM
     Dosage: 75 UG DAILY
     Route: 048
  10. DEXILANT [Concomitant]
     Indication: GASTROOESOPHAGEAL REFLUX DISEASE
     Dosage: 30 MG DAILY
     Route: 048
  11. LORATADINE [Concomitant]
     Indication: HYPERSENSITIVITY
     Dosage: 10 MG DAILY
  12. DEPAKOTE [Concomitant]
     Indication: DEPRESSION
     Dosage: 250MG IN MORNING AND 500MG AT NIGHT
  13. ASPIRIN [Concomitant]
     Indication: ANTICOAGULANT THERAPY
     Dosage: 325 MG DAILY
  14. XANAX [Concomitant]
     Indication: SEDATIVE THERAPY
     Dosage: UNK, DAILY (AT NIGHT)
  15. NAPROXEN SODIUM [Concomitant]
     Indication: SPINAL FRACTURE
     Dosage: 220 MG, UNK
  16. REGLAN [Concomitant]
     Indication: IMPAIRED GASTRIC EMPTYING
     Dosage: 10 MG, UNK

REACTIONS (7)
  - Dyskinesia [Unknown]
  - Nausea [Recovering/Resolving]
  - Pain [Recovered/Resolved]
  - Discomfort [Unknown]
  - Insomnia [Unknown]
  - Pruritus [Unknown]
  - Neuralgia [Unknown]
